FAERS Safety Report 13595969 (Version 1)
Quarter: 2017Q2

REPORT INFORMATION
  Report Type: Spontaneous
  Country: US (occurrence: US)
  Receive Date: 20170530
  Receipt Date: 20170530
  Transmission Date: 20170830
  Serious: Yes (Life-Threatening)
  Sender: FDA-Public Use
  Company Number: None

PATIENT
  Age: 71 Year
  Sex: Female
  Weight: 95.85 kg

DRUGS (10)
  1. LEG VEIN [Concomitant]
  2. AMBIEN [Concomitant]
     Active Substance: ZOLPIDEM TARTRATE
  3. COQ 10 [Concomitant]
     Active Substance: UBIDECARENONE
  4. ASPIRIN. [Concomitant]
     Active Substance: ASPIRIN
  5. METOPROLOL. [Concomitant]
     Active Substance: METOPROLOL
  6. MOVEFREE [Concomitant]
  7. B VITAMINS [Concomitant]
     Active Substance: CYANOCOBALAMIN\DEXPANTHENOL\NIACINAMIDE\PYRIDOXINE HYDROCHLORIDE\RIBOFLAVIN 5^-PHOSPHATE SODIUM\THIAMINE HYDROCHLORIDE\VITAMIN B COMPLEX
  8. NIFEDIPINE. [Concomitant]
     Active Substance: NIFEDIPINE
  9. METFORMIN [Concomitant]
     Active Substance: METFORMIN HYDROCHLORIDE
  10. NIFEDIPINE ER 90MG KREMERS URBAN [Suspect]
     Active Substance: NIFEDIPINE
     Indication: HYPERTENSION
     Dosage: ?          QUANTITY:90 TABLET(S);?
     Route: 048
     Dates: start: 20170401, end: 20170415

REACTIONS (6)
  - Product substitution issue [None]
  - Chest pain [None]
  - Malaise [None]
  - Dyspnoea exertional [None]
  - Asthenia [None]
  - Chest discomfort [None]

NARRATIVE: CASE EVENT DATE: 20170401
